FAERS Safety Report 6904535-9 (Version None)
Quarter: 2010Q3

REPORT INFORMATION
  Report Type: 
  Country: None (occurrence: None)
  Receive Date: 20100804
  Receipt Date: 20090611
  Transmission Date: 20110219
  Serious: No
  Sender: FDA-Public Use
  Company Number: US-PFIZER INC-2009193092

PATIENT
  Sex: Female
  Weight: 84.8 kg

DRUGS (7)
  1. LYRICA [Suspect]
     Indication: FIBROMYALGIA
     Dosage: 50 MG, 2X/DAY
     Route: 048
     Dates: start: 20090331
  2. LYRICA [Suspect]
     Indication: NERVE INJURY
  3. ATENOLOL [Concomitant]
     Dosage: UNK
  4. HYDROCODONE BITARTRATE [Concomitant]
     Dosage: UNK
  5. AMBIEN [Concomitant]
     Dosage: UNK
  6. ESTRADIOL [Concomitant]
     Dosage: UNK
  7. ZANAFLEX [Concomitant]
     Dosage: UNK

REACTIONS (2)
  - FLUSHING [None]
  - OEDEMA [None]
